FAERS Safety Report 12592251 (Version 2)
Quarter: 2016Q3

REPORT INFORMATION
  Report Type: Spontaneous
  Country: IT (occurrence: IT)
  Receive Date: 20160726
  Receipt Date: 20160803
  Transmission Date: 20161109
  Serious: Yes (Other)
  Sender: FDA-Public Use
  Company Number: IT-009507513-1607ITA009554

PATIENT
  Age: 43 Year
  Sex: Male

DRUGS (3)
  1. RIVOTRIL [Suspect]
     Active Substance: CLONAZEPAM
     Dosage: FREQUENCY: TOTAL
     Route: 048
     Dates: start: 20160709, end: 20160709
  2. MIRTAZAPINE. [Suspect]
     Active Substance: MIRTAZAPINE
     Dosage: FREQUENCY: TOTAL
     Route: 048
     Dates: start: 20160709, end: 20160709
  3. INVEGA [Suspect]
     Active Substance: PALIPERIDONE
     Dosage: FREQUENCY: TOTAL
     Route: 048
     Dates: start: 20160709, end: 20160709

REACTIONS (3)
  - Intentional self-injury [Unknown]
  - Intentional overdose [Unknown]
  - Sopor [Unknown]

NARRATIVE: CASE EVENT DATE: 20160709
